FAERS Safety Report 17122375 (Version 1)
Quarter: 2019Q4

REPORT INFORMATION
  Report Type: Spontaneous
  Country: US (occurrence: US)
  Receive Date: 20191114
  Receipt Date: 20191114
  Transmission Date: 20200122
  Serious: Yes (Hospitalization)
  Sender: FDA-Public Use
  Company Number: None

PATIENT
  Age: 77 Year
  Sex: Female
  Weight: 60.7 kg

DRUGS (2)
  1. DARATUMUMAB [Suspect]
     Active Substance: DARATUMUMAB
     Indication: PLASMA CELL MYELOMA
     Dosage: ?          OTHER FREQUENCY:DAY 1 ;?
     Route: 058
     Dates: start: 20191105, end: 20191105
  2. BORTEZOMIB. [Suspect]
     Active Substance: BORTEZOMIB
     Indication: PLASMA CELL MYELOMA
     Dosage: DAY 1,9,15
     Route: 058
     Dates: start: 20191105, end: 20191105

REACTIONS (3)
  - Back pain [None]
  - Pain [None]
  - Diarrhoea [None]

NARRATIVE: CASE EVENT DATE: 20191112
